FAERS Safety Report 19236296 (Version 2)
Quarter: 2021Q2

REPORT INFORMATION
  Report Type: Spontaneous
  Country: US (occurrence: US)
  Receive Date: 20210510
  Receipt Date: 20210517
  Transmission Date: 20210717
  Serious: Yes (Hospitalization)
  Sender: FDA-Public Use
  Company Number: US-DRREDDYS-USA/USA/21/0135302

PATIENT
  Age: 67 Year
  Sex: Female
  Weight: 117 kg

DRUGS (11)
  1. LORAZEPAM INJECTION USP, 2 MG/ML AND 4 MG/ML [Suspect]
     Active Substance: LORAZEPAM
     Dosage: 4MG (AS ACCUMULATIVE DOSE: 0.5, 0.5, 1.0 AND 2.0MG),
     Route: 042
  2. LEVETIRACETAM. [Suspect]
     Active Substance: LEVETIRACETAM
     Indication: STATUS EPILEPTICUS
     Route: 042
  3. SODIUM VALPROATE [Suspect]
     Active Substance: VALPROATE SODIUM
     Indication: STATUS EPILEPTICUS
     Dosage: WAS ADMINISTERED 20 MINUTE FOLLOWING THE FIRST FORMAL CONTINUOUS
     Route: 042
  4. LORAZEPAM INJECTION USP, 2 MG/ML AND 4 MG/ML [Suspect]
     Active Substance: LORAZEPAM
     Dosage: 4MG (AS ACCUMULATIVE DOSE: 0.5, 0.5, 1.0 AND 2.0MG),
     Route: 042
  5. LACOSAMIDE. [Suspect]
     Active Substance: LACOSAMIDE
     Indication: STATUS EPILEPTICUS
     Route: 042
  6. LORAZEPAM INJECTION USP, 2 MG/ML AND 4 MG/ML [Suspect]
     Active Substance: LORAZEPAM
     Indication: STATUS EPILEPTICUS
     Dosage: 4MG (AS ACCUMULATIVE DOSE: 0.5, 0.5, 1.0 AND 2.0MG),
     Route: 042
  7. LACOSAMIDE. [Suspect]
     Active Substance: LACOSAMIDE
     Dosage: ADMINISTERED 13 HOURS POST THE FOSPHENYTOIN LOADING DOSE
     Route: 042
  8. FOSPHENYTOIN SODIUM. [Suspect]
     Active Substance: FOSPHENYTOIN SODIUM
     Indication: STATUS EPILEPTICUS
     Dosage: ADMINISTERED 3 HOURS POST THE LEVETIRACETAM DOSE
     Route: 042
  9. LORAZEPAM INJECTION USP, 2 MG/ML AND 4 MG/ML [Suspect]
     Active Substance: LORAZEPAM
     Dosage: 4MG (AS ACCUMULATIVE DOSE: 0.5, 0.5, 1.0 AND 2.0MG),
     Route: 042
  10. LEVETIRACETAM. [Suspect]
     Active Substance: LEVETIRACETAM
     Dosage: ONCE (ADMINISTERED 5 HOURS POST SODIUM VALPROATE LOADING DOSE)
     Route: 042
  11. FOSPHENYTOIN SODIUM. [Suspect]
     Active Substance: FOSPHENYTOIN SODIUM
     Route: 042

REACTIONS (2)
  - Pneumonia staphylococcal [Unknown]
  - Drug ineffective [Unknown]
